FAERS Safety Report 6304259-5 (Version None)
Quarter: 2009Q3

REPORT INFORMATION
  Report Type: 
  Country: None (occurrence: None)
  Receive Date: 20090806
  Receipt Date: 20090620
  Transmission Date: 20100115
  Serious: Yes (Hospitalization)
  Sender: FDA-Public Use
  Company Number: 2009EU002903

PATIENT
  Age: 41 Year
  Sex: Female

DRUGS (24)
  1. FK505   (TACROLIMUS CAPSULES) [Suspect]
     Indication: RENAL TRANSPLANT
     Dosage: 4 MG, BID, ORAL; 2MG, BID, ORAL
     Route: 048
     Dates: start: 20040114, end: 20040606
  2. FK505   (TACROLIMUS CAPSULES) [Suspect]
     Indication: RENAL TRANSPLANT
     Dosage: 4 MG, BID, ORAL; 2MG, BID, ORAL
     Route: 048
     Dates: start: 20040607
  3. MYCOPHENOLATE MOFETIL [Suspect]
     Indication: RENAL TRANSPLANT
     Dosage: 1 G, BID, ORAL
     Route: 048
     Dates: start: 20031202, end: 20040220
  4. DACLIZUMAB(DACLIZUMAB) [Suspect]
     Indication: RENAL TRANSPLANT
     Dosage: 130 MG, TOTAL DOSE, IV NOS
     Route: 042
     Dates: start: 20031202, end: 20031202
  5. CYCLOSPORINE [Suspect]
     Indication: RENAL TRANSPLANT
     Dosage: 100 MG, UID/QD, ORAL
     Route: 048
     Dates: start: 20031209, end: 20031215
  6. SIROLIMUS (SIROLIMUS) [Suspect]
     Indication: RENAL TRANSPLANT
     Dosage: 9 MG, UID/QD, ORAL
     Route: 048
     Dates: start: 20031216, end: 20040113
  7. METHYLPREDNISOLONE(METHYLPREDNISOLONE SODIUM SUCCINATE) [Suspect]
     Indication: RENAL TRANSPLANT
     Dosage: 500 MG, UID/QD; IV NOS
     Route: 042
     Dates: start: 20031202, end: 20031203
  8. PREDNISOLONE [Suspect]
     Indication: RENAL TRANSPLANT
     Dosage: 50 MG, UID/QD, ORAL
     Route: 048
     Dates: start: 20031204
  9. FUROSEMID (FUROSEMIDE SODIUM) [Concomitant]
  10. VALGANCICLOVIR HCL [Concomitant]
  11. METOPROLOL TARTRATE [Concomitant]
  12. PANTOPRAZOL (PANTOPRAZOLE SODIUM) [Concomitant]
  13. ALFACALCIDOL (ALFACALCIDOL) [Concomitant]
  14. CALCIUM (ASCORBIC ACID) [Concomitant]
  15. EPOETIN NOS (EPOETIN NOS) [Concomitant]
  16. INSULIN (INSULIN) [Concomitant]
  17. ATG FRESENIUS (ANTITHYMOCYTE IMMUNOGLOBULIN) [Concomitant]
  18. AZATIOPRIN [Concomitant]
  19. CIPROFLOXACIN (CIPROFLOXACIN LACTATE) [Concomitant]
  20. IMUREL (AZATHIOPRINE SODIUM) [Concomitant]
  21. ISOSORBID MONONITRAT (ISOSORBIDE MONONITRATE) [Concomitant]
  22. KETOBEMIDONE (KETOBEMIDONE) [Concomitant]
  23. MEROPENEM (MEROPENEM TRIHYDRATE) [Concomitant]
  24. CEFOTAXIME SODIUM [Concomitant]

REACTIONS (11)
  - ABDOMINAL PAIN [None]
  - DIALYSIS [None]
  - LYMPHOCELE [None]
  - MYOSITIS [None]
  - OSTEOMYELITIS [None]
  - PAIN IN EXTREMITY [None]
  - PYELONEPHRITIS [None]
  - SEPSIS [None]
  - THROMBOSIS [None]
  - URETERIC OBSTRUCTION [None]
  - URINARY TRACT INFECTION [None]
